FAERS Safety Report 13159862 (Version 10)
Quarter: 2019Q3

REPORT INFORMATION
  Report Type: Report from Study
  Country: JP (occurrence: JP)
  Receive Date: 20170127
  Receipt Date: 20190917
  Transmission Date: 20191004
  Serious: Yes (Death, Hospitalization, Other)
  Sender: FDA-Public Use
  Company Number: PHJP2016JP019725

PATIENT
  Age: 41 Year
  Sex: Female

DRUGS (8)
  1. TAFINLAR [Suspect]
     Active Substance: DABRAFENIB MESYLATE
     Dosage: 100 MG, QD
     Route: 048
     Dates: start: 20160726, end: 20161002
  2. MEKINIST [Suspect]
     Active Substance: TRAMETINIB DIMETHYL SULFOXIDE
     Indication: MALIGNANT MELANOMA STAGE IV
     Dosage: 2 MG, QD
     Route: 048
     Dates: start: 20160601, end: 20160708
  3. TAFINLAR [Suspect]
     Active Substance: DABRAFENIB MESYLATE
     Indication: MALIGNANT MELANOMA STAGE IV
     Dosage: 300 MG, QD
     Route: 048
     Dates: start: 20160601, end: 20160708
  4. MEKINIST [Suspect]
     Active Substance: TRAMETINIB DIMETHYL SULFOXIDE
     Dosage: 1.5 MG, QD
     Route: 048
     Dates: start: 20160907, end: 20161002
  5. TAFINLAR [Suspect]
     Active Substance: DABRAFENIB MESYLATE
     Dosage: 100 MG, QD
     Route: 048
     Dates: start: 20161017, end: 20161126
  6. RINDERON [Concomitant]
     Indication: PRODUCT USED FOR UNKNOWN INDICATION
     Dosage: 0.5 MG, UNK
     Route: 048
  7. TAFINLAR [Suspect]
     Active Substance: DABRAFENIB MESYLATE
     Dosage: 200 MG, QD
     Route: 048
     Dates: start: 20160721, end: 20160725
  8. MEKINIST [Suspect]
     Active Substance: TRAMETINIB DIMETHYL SULFOXIDE
     Dosage: 1.5 MG, QD
     Route: 048
     Dates: start: 20161017, end: 20161126

REACTIONS (17)
  - Chromaturia [Recovered/Resolved]
  - Nausea [Recovering/Resolving]
  - Hypoaesthesia [Recovering/Resolving]
  - Malignant melanoma stage IV [Fatal]
  - Blood creatine phosphokinase increased [Recovered/Resolved]
  - Pyrexia [Recovering/Resolving]
  - Malignant neoplasm progression [Fatal]
  - Hepatic function abnormal [Unknown]
  - Muscular weakness [Recovered/Resolved]
  - Fatigue [Recovered/Resolved]
  - Vomiting [Unknown]
  - Delirium [Fatal]
  - Myoglobinuria [Recovering/Resolving]
  - Myalgia [Recovered/Resolved]
  - Fall [Unknown]
  - Dementia Alzheimer^s type [Unknown]
  - Rhabdomyolysis [Recovered/Resolved]

NARRATIVE: CASE EVENT DATE: 20160612
